FAERS Safety Report 25238481 (Version 2)
Quarter: 2025Q2

REPORT INFORMATION
  Report Type: Report from Study
  Country: CA (occurrence: CA)
  Receive Date: 20250425
  Receipt Date: 20250620
  Transmission Date: 20250717
  Serious: Yes (Other)
  Sender: TAKEDA
  Company Number: CA-TAKEDA-2025TUS008618

PATIENT
  Sex: Male

DRUGS (13)
  1. VEDOLIZUMAB [Suspect]
     Active Substance: VEDOLIZUMAB
     Indication: Crohn^s disease
  2. VEDOLIZUMAB [Suspect]
     Active Substance: VEDOLIZUMAB
  3. VEDOLIZUMAB [Suspect]
     Active Substance: VEDOLIZUMAB
  4. IRON [Concomitant]
     Active Substance: IRON
     Indication: Supplementation therapy
  5. PREVACID [Concomitant]
     Active Substance: LANSOPRAZOLE
  6. ATENOLOL [Concomitant]
     Active Substance: ATENOLOL
  7. CANDESARTAN [Concomitant]
     Active Substance: CANDESARTAN
  8. FERROUS SULFATE [Concomitant]
     Active Substance: FERROUS SULFATE
  9. APIXABAN [Concomitant]
     Active Substance: APIXABAN
  10. PRIMIDONE [Concomitant]
     Active Substance: PRIMIDONE
  11. AVODART [Concomitant]
     Active Substance: DUTASTERIDE
  12. FLOMAX [Concomitant]
     Active Substance: TAMSULOSIN HYDROCHLORIDE
  13. VENTOLIN [Concomitant]
     Active Substance: ALBUTEROL SULFATE

REACTIONS (5)
  - Dehydration [Recovering/Resolving]
  - Blood pressure decreased [Recovering/Resolving]
  - Dizziness [Recovering/Resolving]
  - Blood pressure diastolic increased [Unknown]
  - Blood pressure increased [Unknown]
